FAERS Safety Report 6383359-8 (Version None)
Quarter: 2009Q4

REPORT INFORMATION
  Report Type: 
  Country: None (occurrence: None)
  Receive Date: 20091001
  Receipt Date: 20090924
  Transmission Date: 20100525
  Serious: Yes (Hospitalization)
  Sender: FDA-Public Use
  Company Number: PHHO2009DE07564

PATIENT

DRUGS (1)
  1. CGS 20267 T30748+TAB [Suspect]
     Indication: BREAST CANCER
     Dosage: UNK
     Route: 048
     Dates: start: 20071120, end: 20090316

REACTIONS (4)
  - ERYTHEMA [None]
  - JAW OPERATION [None]
  - OSTEONECROSIS [None]
  - PAIN [None]
